FAERS Safety Report 17819205 (Version 1)
Quarter: 2020Q2

REPORT INFORMATION
  Report Type: Spontaneous
  Country: CA (occurrence: CA)
  Receive Date: 20200523
  Receipt Date: 20200523
  Transmission Date: 20200714
  Serious: Yes (Hospitalization, Other)
  Sender: FDA-Public Use
  Company Number: CA-AMGEN-CANSP2020081103

PATIENT
  Age: 39 Year
  Sex: Male

DRUGS (8)
  1. KEPIVANCE [Suspect]
     Active Substance: PALIFERMIN
     Indication: PRODUCT USED FOR UNKNOWN INDICATION
     Dosage: 5.0 MILLIGRAM, QD (1 EVERY 1 DAYS)
     Route: 042
  2. ETOPOSIDE. [Suspect]
     Active Substance: ETOPOSIDE
     Indication: PRODUCT USED FOR UNKNOWN INDICATION
     Dosage: 4920 MILLIGRAM
     Route: 065
  3. TOBRAMYCIN. [Concomitant]
     Active Substance: TOBRAMYCIN
     Dosage: 550 MILLIGRAM, QD (EVERY 1 DAY)
     Route: 042
  4. CEFAZOLIN [Concomitant]
     Active Substance: CEFAZOLIN
     Dosage: UNK
     Route: 042
  5. MELPHALAN. [Concomitant]
     Active Substance: MELPHALAN
     Dosage: UNK
  6. NEUPOGEN [Suspect]
     Active Substance: FILGRASTIM
     Indication: PRODUCT USED FOR UNKNOWN INDICATION
     Dosage: UNK
     Route: 042
  7. TOBRAMYCIN. [Concomitant]
     Active Substance: TOBRAMYCIN
     Dosage: 500 MILLIGRAM, QD (1 EVERY 1 DAY)
     Route: 065
  8. PIPERACILLIN. [Concomitant]
     Active Substance: PIPERACILLIN SODIUM
     Dosage: UNK
     Route: 042

REACTIONS (18)
  - Neuropathy peripheral [Unknown]
  - Erythema [Unknown]
  - Leukocytosis [Unknown]
  - Salivary hypersecretion [Unknown]
  - Tongue ulceration [Unknown]
  - Leukopenia [Unknown]
  - Petechiae [Unknown]
  - Paraesthesia [Unknown]
  - Pain [Unknown]
  - Neutropenia [Unknown]
  - Oedema peripheral [Unknown]
  - Blister [Unknown]
  - Skin exfoliation [Unknown]
  - Mucosal inflammation [Unknown]
  - Anaemia [Unknown]
  - Viral infection [Unknown]
  - Rash maculo-papular [Unknown]
  - Thrombocytopenia [Unknown]
